FAERS Safety Report 5354256-1 (Version None)
Quarter: 2007Q2

REPORT INFORMATION
  Report Type: 
  Country: None (occurrence: None)
  Receive Date: 20070521
  Receipt Date: 20070119
  Transmission Date: 20071010
  Serious: No
  Sender: FDA-Public Use
  Company Number: WAES 0701USA03443

PATIENT
  Age: 81 Year
  Sex: Female

DRUGS (6)
  1. JANUVIA [Suspect]
     Indication: DIABETES MELLITUS
     Dosage: 100 MG/DAILY/PO
     Route: 048
     Dates: start: 20070112
  2. COUMADIN [Concomitant]
  3. COZAAR [Concomitant]
  4. LIPITOR [Concomitant]
  5. NORVASC [Concomitant]
  6. DIGOXIN [Concomitant]

REACTIONS (3)
  - DYSURIA [None]
  - EYE SWELLING [None]
  - JOINT SWELLING [None]
